FAERS Safety Report 8006768-X (Version None)
Quarter: 2011Q4

REPORT INFORMATION
  Report Type: 
  Country: None (occurrence: None)
  Receive Date: 20111227
  Receipt Date: 20111215
  Transmission Date: 20120403
  Serious: Yes (Hospitalization)
  Sender: FDA-Public Use
  Company Number: US-BAYER-2011-044828

PATIENT
  Age: 40 Year
  Sex: Female
  Weight: 66 kg

DRUGS (5)
  1. YASMIN [Suspect]
     Indication: CONTRACEPTION
     Dosage: UNK
     Dates: start: 20050401, end: 20081101
  2. IUD NOS [Concomitant]
  3. SODIUM SULFACETAMIDE [Concomitant]
  4. ASPIRIN [Concomitant]
  5. DROSPIRENONE AND ETHINYL ESTRADIOL [Suspect]
     Indication: CONTRACEPTION
     Dosage: UNK
     Dates: start: 20081101, end: 20100301

REACTIONS (10)
  - CHOLECYSTITIS CHRONIC [None]
  - BILE DUCT STONE [None]
  - CHOLELITHIASIS [None]
  - ABDOMINAL PAIN [None]
  - GALLBLADDER CHOLESTEROLOSIS [None]
  - NAUSEA [None]
  - GALLBLADDER DISORDER [None]
  - BILE DUCT OBSTRUCTION [None]
  - INJURY [None]
  - PAIN [None]
